FAERS Safety Report 4380399-5 (Version None)
Quarter: 2004Q2

REPORT INFORMATION
  Report Type: 
  Country: None (occurrence: None)
  Receive Date: 20040616
  Receipt Date: 20040616
  Transmission Date: 20050107
  Serious: Yes (Hospitalization)
  Sender: FDA-Public Use
  Company Number: None

PATIENT
  Age: 59 Year
  Sex: Male
  Weight: 54.8852 kg

DRUGS (6)
  1. IRESSA [Suspect]
     Indication: METASTASES TO LIVER
     Dosage: 250 MG QD PO
     Route: 048
     Dates: start: 20040602, end: 20040615
  2. IRESSA [Suspect]
     Indication: PANCREATIC CARCINOMA
     Dosage: 250 MG QD PO
     Route: 048
     Dates: start: 20040602, end: 20040615
  3. GEMZAR [Suspect]
     Indication: METASTASES TO LIVER
     Dosage: 1500 MG Q W IVPB
     Route: 042
     Dates: start: 20040602
  4. GEMZAR [Suspect]
     Indication: PANCREATIC CARCINOMA
     Dosage: 1500 MG Q W IVPB
     Route: 042
     Dates: start: 20040602
  5. GEMZAR [Suspect]
     Indication: METASTASES TO LIVER
     Dosage: 1500 MG Q W IVPB
     Route: 042
     Dates: start: 20040609
  6. GEMZAR [Suspect]
     Indication: PANCREATIC CARCINOMA
     Dosage: 1500 MG Q W IVPB
     Route: 042
     Dates: start: 20040609

REACTIONS (3)
  - ABSCESS [None]
  - INFECTION [None]
  - MEDICAL DEVICE COMPLICATION [None]
